FAERS Safety Report 10961630 (Version 2)
Quarter: 2015Q2

REPORT INFORMATION
  Report Type: Report from Study
  Country: US (occurrence: US)
  Receive Date: 20150327
  Receipt Date: 20150420
  Transmission Date: 20150821
  Serious: Yes (Life-Threatening, Hospitalization, Other)
  Sender: FDA-Public Use
  Company Number: US-GILEAD-2015-0144737

PATIENT
  Age: 72 Year
  Sex: Male
  Weight: 88.44 kg

DRUGS (11)
  1. NADOLOL. [Concomitant]
     Active Substance: NADOLOL
     Indication: VARICES OESOPHAGEAL
     Dosage: UNK
     Dates: start: 20080908
  2. XIFAXAN [Concomitant]
     Active Substance: RIFAXIMIN
     Indication: HEPATIC CIRRHOSIS
  3. OMEPRAZOLE. [Concomitant]
     Active Substance: OMEPRAZOLE
     Indication: PRODUCT USED FOR UNKNOWN INDICATION
  4. BUMETANIDE. [Concomitant]
     Active Substance: BUMETANIDE
     Indication: PRODUCT USED FOR UNKNOWN INDICATION
     Dosage: UNK
  5. ALBUTEROL SULFATE. [Concomitant]
     Active Substance: ALBUTEROL SULFATE
     Indication: PRODUCT USED FOR UNKNOWN INDICATION
     Dosage: UNK
     Dates: start: 20141220
  6. LEDIPASVIR/SOFOSBUVIR [Suspect]
     Active Substance: LEDIPASVIR\SOFOSBUVIR
     Indication: CHRONIC HEPATITIS C
     Dosage: 1 DF, UNK
     Route: 048
     Dates: start: 20150114, end: 20150224
  7. XIFAXAN [Concomitant]
     Active Substance: RIFAXIMIN
     Indication: HEPATIC ENCEPHALOPATHY
     Dosage: UNK
     Dates: start: 20131217
  8. KRISTALOSE [Concomitant]
     Active Substance: LACTULOSE
     Indication: PRODUCT USED FOR UNKNOWN INDICATION
     Dosage: UNK
     Dates: start: 20150415
  9. LACTULOSE. [Concomitant]
     Active Substance: LACTULOSE
     Indication: ENCEPHALOPATHY
     Dosage: UNK
     Dates: start: 20130725
  10. FOLIC ACID. [Concomitant]
     Active Substance: FOLIC ACID
     Indication: PRODUCT USED FOR UNKNOWN INDICATION
     Dosage: UNK
     Dates: start: 20080110
  11. CARDURA [Concomitant]
     Active Substance: DOXAZOSIN MESYLATE
     Indication: HYPERTENSION

REACTIONS (3)
  - Blood creatinine increased [Unknown]
  - Blood creatinine decreased [Unknown]
  - Acute kidney injury [Unknown]

NARRATIVE: CASE EVENT DATE: 20150211
